FAERS Safety Report 8799026 (Version 1)
Quarter: 2012Q4

REPORT INFORMATION
  Report Type: 
  Country: NL (occurrence: NL)
  Receive Date: 20120920
  Receipt Date: 20120920
  Transmission Date: 20130627
  Serious: Yes (Other)
  Sender: FDA-Public Use
  Company Number: PHHY2009NL071322

PATIENT

DRUGS (4)
  1. AMANTADINE [Suspect]
     Indication: HEPATITIS C
     Dosage: 200 mg, UNK
  2. PEGINTERFERON ALFA-2B [Concomitant]
     Dosage: 1.5 ug/kg, UNK
  3. PEGINTERFERON ALFA-2B [Concomitant]
     Dosage: 1 ug/kg, UNK
  4. RIBAVIRIN [Concomitant]

REACTIONS (2)
  - Hepatic cirrhosis [Unknown]
  - Drug ineffective [Unknown]
